FAERS Safety Report 6955401 (Version 2)
Quarter: 2016Q1

REPORT INFORMATION
  Report Type: Spontaneous
  Country: DE (occurrence: DE)
  Receive Date: 20090330
  Receipt Date: 20160118
  Transmission Date: 20160526
  Serious: Yes (Hospitalization, Other)
  Sender: FDA-Public Use
  Company Number: DE-BRISTOL-MYERS SQUIBB COMPANY-14562219

PATIENT
  Age: 1 Day
  Sex: Female
  Weight: 2.73 kg

DRUGS (1)
  1. ABILIFY [Suspect]
     Active Substance: ARIPIPRAZOLE
     Indication: PRODUCT USED FOR UNKNOWN INDICATION
     Dosage: 15 MG, BID
     Route: 064

REACTIONS (5)
  - Respiratory failure [Unknown]
  - Pleural effusion [Unknown]
  - Hyperbilirubinaemia [Unknown]
  - Pneumonia [Unknown]
  - Foetal exposure during pregnancy [Unknown]
